FAERS Safety Report 13273393 (Version 6)
Quarter: 2018Q3

REPORT INFORMATION
  Report Type: Report from Study
  Country: JP (occurrence: JP)
  Receive Date: 20170227
  Receipt Date: 20180920
  Transmission Date: 20181010
  Serious: Yes (Disabling, Other)
  Sender: FDA-Public Use
  Company Number: PHJP2017JP006284

PATIENT
  Age: 7 Month
  Sex: Male

DRUGS (18)
  1. LAC?B [Concomitant]
     Active Substance: BIFIDOBACTERIUM SPP.
     Indication: PROPHYLAXIS AGAINST DIARRHOEA
     Dosage: 0.8 G, UNK
     Route: 048
     Dates: start: 20170223, end: 20170304
  2. CEFOTAXIME [Concomitant]
     Active Substance: CEFOTAXIME SODIUM
     Indication: PROPHYLAXIS
     Dosage: 900 MG, UNK
     Route: 065
     Dates: start: 20170222, end: 20170224
  3. ILARIS [Suspect]
     Active Substance: CANAKINUMAB
     Dosage: 46.5 MG, UNK
     Route: 058
     Dates: start: 20170530
  4. PHENOBAL [Concomitant]
     Active Substance: PHENOBARBITAL
     Dosage: UNK
     Route: 048
  5. INCREMIN [Concomitant]
     Active Substance: FERRIC PYROPHOSPHATE
     Indication: CHRONIC INFANTILE NEUROLOGICAL CUTANEOUS AND ARTICULAR SYNDROME
     Dosage: 6 ML, UNK
     Route: 048
     Dates: start: 20170110
  6. INFLUENZA VACCINE [Concomitant]
     Active Substance: INFLUENZA VIRUS VACCINE
     Dosage: 0.25 ML, UNK
     Route: 065
     Dates: start: 20170110, end: 20170110
  7. ILARIS [Suspect]
     Active Substance: CANAKINUMAB
     Dosage: 16.5 MG, UNK
     Route: 058
     Dates: start: 20161018, end: 20161018
  8. ILARIS [Suspect]
     Active Substance: CANAKINUMAB
     Dosage: 31.5 MG, UNK
     Route: 058
     Dates: start: 20170404
  9. SYNAGIS [Concomitant]
     Active Substance: PALIVIZUMAB
     Indication: PROPHYLAXIS
     Dosage: 120 MG, 4W
     Route: 065
     Dates: start: 20161213
  10. ILARIS [Suspect]
     Active Substance: CANAKINUMAB
     Dosage: 63 MG, UNK
     Route: 058
     Dates: start: 20170725
  11. INFLUENZA VACCINE [Concomitant]
     Active Substance: INFLUENZA VIRUS VACCINE
     Indication: PROPHYLAXIS
     Dosage: 0.25 ML, UNK
     Route: 065
     Dates: start: 20161115, end: 20161115
  12. CEFOTAXIME [Concomitant]
     Active Substance: CEFOTAXIME SODIUM
     Indication: PNEUMONIA
  13. ILARIS [Suspect]
     Active Substance: CANAKINUMAB
     Indication: CHRONIC INFANTILE NEUROLOGICAL CUTANEOUS AND ARTICULAR SYNDROME
     Dosage: 15 MG, UNK
     Route: 058
     Dates: start: 20160823, end: 20160823
  14. ILARIS [Suspect]
     Active Substance: CANAKINUMAB
     Dosage: 16.5 MG, UNK
     Route: 058
     Dates: start: 20161213, end: 20161213
  15. ILARIS [Suspect]
     Active Substance: CANAKINUMAB
     Dosage: 16.5 MG, UNK
     Route: 058
     Dates: start: 20170207
  16. ILARIS [Suspect]
     Active Substance: CANAKINUMAB
     Dosage: 15 TH DOSE
     Route: 058
  17. PHENOBAL [Concomitant]
     Active Substance: PHENOBARBITAL
     Indication: CHRONIC INFANTILE NEUROLOGICAL CUTANEOUS AND ARTICULAR SYNDROME
     Dosage: 40 MG, UNK
     Route: 048
     Dates: start: 20160424
  18. BAKTAR [Concomitant]
     Active Substance: SULFAMETHOXAZOLE\TRIMETHOPRIM
     Indication: PROPHYLAXIS
     Dosage: 0.5 G, UNK
     Route: 048
     Dates: start: 20170314

REACTIONS (23)
  - Dyskinesia [Unknown]
  - Papilloedema [Recovered/Resolved with Sequelae]
  - Condition aggravated [Recovered/Resolved]
  - Bronchitis [Recovering/Resolving]
  - Rhinorrhoea [Recovering/Resolving]
  - Benign enlargement of the subarachnoid spaces [Unknown]
  - Asthenia [Unknown]
  - Subdural hygroma [Unknown]
  - Cryopyrin associated periodic syndrome [Recovered/Resolved]
  - Cough [Recovering/Resolving]
  - Road traffic accident [Recovered/Resolved]
  - Mastication disorder [Unknown]
  - Seizure [Unknown]
  - White blood cell count increased [Recovered/Resolved]
  - Drug administered to patient of inappropriate age [Not Recovered/Not Resolved]
  - Nasopharyngitis [Recovered/Resolved]
  - Tardive dyskinesia [Unknown]
  - Restlessness [Unknown]
  - Head titubation [Unknown]
  - Gait disturbance [Unknown]
  - Pneumonia [Unknown]
  - Hyperthermia [Unknown]
  - Cerebral atrophy [Unknown]

NARRATIVE: CASE EVENT DATE: 20160823
